FAERS Safety Report 10619103 (Version 1)
Quarter: 2014Q4

REPORT INFORMATION
  Report Type: Spontaneous
  Country: FI (occurrence: FI)
  Receive Date: 20141202
  Receipt Date: 20141202
  Transmission Date: 20150529
  Serious: Yes (Other)
  Sender: FDA-Public Use
  Company Number: CHPA2014FI015804

PATIENT
  Sex: Female

DRUGS (2)
  1. NICOTINELL [Suspect]
     Active Substance: NICOTINE
     Indication: SMOKING CESSATION THERAPY
     Dosage: 4 MG, UNK
     Route: 065
  2. NICOTINELL [Suspect]
     Active Substance: NICOTINE
     Dosage: 2 MG, UNK
     Route: 065

REACTIONS (3)
  - Off label use [Unknown]
  - Drug dependence [Unknown]
  - Stomatitis [Recovered/Resolved]
